FAERS Safety Report 12431657 (Version 1)
Quarter: 2016Q2

REPORT INFORMATION
  Report Type: Spontaneous
  Country: US (occurrence: None)
  Receive Date: 20160602
  Receipt Date: 20160602
  Transmission Date: 20160815
  Serious: Yes (Disabling)
  Sender: FDA-Public Use
  Company Number: None

PATIENT
  Age: 73 Year
  Sex: Female
  Weight: 66.23 kg

DRUGS (9)
  1. LEVOFLOXACIN ORAL 750 MG, 750 MG [Suspect]
     Active Substance: LEVOFLOXACIN
     Indication: CELLULITIS
     Dosage: 1 TABLET ONCE A DAY
     Route: 048
     Dates: start: 20151127, end: 20151207
  2. LEVOFLOXACIN ORAL 750 MG, 750 MG [Suspect]
     Active Substance: LEVOFLOXACIN
     Indication: ANIMAL BITE
     Dosage: 1 TABLET ONCE A DAY
     Route: 048
     Dates: start: 20151127, end: 20151207
  3. CADUET [Concomitant]
     Active Substance: AMLODIPINE BESYLATE\ATORVASTATIN CALCIUM
  4. LEVOTHYROXINE. [Concomitant]
     Active Substance: LEVOTHYROXINE
  5. CALCIUM CARBONATE. [Concomitant]
     Active Substance: CALCIUM CARBONATE
  6. CENTRUM SILVER [Concomitant]
     Active Substance: MINERALS\VITAMINS
  7. RALOXIFENE. [Concomitant]
     Active Substance: RALOXIFENE
  8. SERTRALINE [Concomitant]
     Active Substance: SERTRALINE HYDROCHLORIDE
  9. GLUCOASAMINE [Concomitant]

REACTIONS (5)
  - Arthralgia [None]
  - Quality of life decreased [None]
  - Musculoskeletal pain [None]
  - Tendon disorder [None]
  - Gait disturbance [None]

NARRATIVE: CASE EVENT DATE: 20151127
